FAERS Safety Report 20167756 (Version 1)
Quarter: 2021Q4

REPORT INFORMATION
  Report Type: Spontaneous
  Country: US (occurrence: US)
  Receive Date: 20211210
  Receipt Date: 20211210
  Transmission Date: 20220303
  Serious: No
  Sender: FDA-Public Use
  Company Number: US-SA-SAC20211207000026

PATIENT
  Age: 59 Year
  Sex: Male

DRUGS (3)
  1. DUPIXENT [Suspect]
     Active Substance: DUPILUMAB
     Dosage: 300 MG
     Route: 058
     Dates: start: 202004
  2. HYDROGEN PEROXIDE [Concomitant]
     Active Substance: HYDROGEN PEROXIDE
     Dosage: UNK
  3. ALOE VERA LEAF [Concomitant]
     Active Substance: ALOE VERA LEAF
     Dosage: UNK

REACTIONS (5)
  - Pruritus [Unknown]
  - Eczema [Unknown]
  - Skin burning sensation [Unknown]
  - Condition aggravated [Unknown]
  - Product preparation error [Unknown]

NARRATIVE: CASE EVENT DATE: 20211126
